FAERS Safety Report 9656099 (Version 1)
Quarter: 2013Q4

REPORT INFORMATION
  Report Type: Spontaneous
  Country: US (occurrence: None)
  Receive Date: 20131029
  Receipt Date: 20131029
  Transmission Date: 20140711
  Serious: No
  Sender: FDA-Public Use
  Company Number: None

PATIENT
  Age: 60 None
  Sex: Female

DRUGS (15)
  1. SINGULAIR (MONTELUKAST) 10MG [Suspect]
     Indication: MULTIPLE ALLERGIES
     Route: 048
     Dates: start: 20130927, end: 20130930
  2. SINGULAIR (MONTELUKAST) 10MG [Suspect]
     Indication: EAR CONGESTION
     Route: 048
     Dates: start: 20130927, end: 20130930
  3. CYTOMEL [Concomitant]
  4. SYNTHROID [Concomitant]
  5. COZAR [Concomitant]
  6. TRAZEDONE [Concomitant]
  7. LEXAPRO [Concomitant]
  8. HRT [Concomitant]
  9. Q NASAL SPRAY [Concomitant]
  10. VITAMIN B-12 [Concomitant]
  11. D-3 [Concomitant]
  12. MAGNESIUM [Concomitant]
  13. MULTIVITAMIN [Concomitant]
  14. CALCIUM [Concomitant]
  15. IBUPROPHEN [Concomitant]

REACTIONS (3)
  - Crying [None]
  - Depression [None]
  - Depressed mood [None]
